FAERS Safety Report 4429320-1 (Version None)
Quarter: 2004Q3

REPORT INFORMATION
  Report Type: 
  Country: None (occurrence: None)
  Receive Date: 20040818
  Receipt Date: 20040818
  Transmission Date: 20050211
  Serious: Yes (Hospitalization)
  Sender: FDA-Public Use
  Company Number: None

PATIENT
  Age: 53 Year
  Sex: Male
  Weight: 100 kg

DRUGS (7)
  1. METHADONE HCL [Suspect]
     Indication: BACK PAIN
     Dosage: 30 MG QHS ORAL
     Route: 048
     Dates: start: 20031112, end: 20031123
  2. METHADONE HCL [Suspect]
     Indication: DRUG DEPENDENCE
     Dosage: 30 MG QHS ORAL
     Route: 048
     Dates: start: 20031112, end: 20031123
  3. GABAPENTIN [Suspect]
     Indication: PAIN
     Dosage: 600 MG TID ORAL
     Route: 048
     Dates: start: 20031112, end: 20031123
  4. VICODIN PRN [Concomitant]
  5. ASPIRIN [Concomitant]
  6. DOCUSATE [Concomitant]
  7. HYDROXYZINE [Concomitant]

REACTIONS (2)
  - DRUG INTERACTION [None]
  - OVERDOSE [None]
